FAERS Safety Report 9067568 (Version 1)
Quarter: 2013Q1

REPORT INFORMATION
  Report Type: Report from Study
  Country: US (occurrence: US)
  Receive Date: 20130131
  Receipt Date: 20130131
  Transmission Date: 20140127
  Serious: No
  Sender: FDA-Public Use
  Company Number: US-ABBOTT-12P-163-1009386-00

PATIENT
  Sex: Female

DRUGS (2)
  1. HUMIRA [Suspect]
     Route: 058
     Dates: start: 201202
  2. HUMIRA [Suspect]

REACTIONS (3)
  - Thermal burn [Unknown]
  - Drug dose omission [Unknown]
  - Rheumatoid arthritis [Recovered/Resolved]
